FAERS Safety Report 18357692 (Version 3)
Quarter: 2020Q4

REPORT INFORMATION
  Report Type: Spontaneous
  Country: AU (occurrence: AU)
  Receive Date: 20201007
  Receipt Date: 20201125
  Transmission Date: 20210114
  Serious: Yes (Hospitalization)
  Sender: FDA-Public Use
  Company Number: AU-NOVOPROD-756635

PATIENT
  Age: 45 Year
  Sex: Female
  Weight: 110 kg

DRUGS (1)
  1. SAXENDA [Suspect]
     Active Substance: LIRAGLUTIDE
     Indication: PRODUCT USED FOR UNKNOWN INDICATION
     Dosage: 0.6 MG
     Route: 065
     Dates: start: 20200803, end: 20200807

REACTIONS (7)
  - Dyspnoea [Unknown]
  - Urinary tract infection [Recovered/Resolved]
  - Feeling of body temperature change [Unknown]
  - Diarrhoea [Unknown]
  - Dehydration [Recovered/Resolved]
  - Cardiac infection [Unknown]
  - Hyperhidrosis [Unknown]

NARRATIVE: CASE EVENT DATE: 20200807
